FAERS Safety Report 4329852-0 (Version None)
Quarter: 2004Q1

REPORT INFORMATION
  Report Type: 
  Country: None (occurrence: None)
  Receive Date: 20040329
  Receipt Date: 20040315
  Transmission Date: 20041129
  Serious: No
  Sender: FDA-Public Use
  Company Number: FR-JNJFOC-20031203402

PATIENT
  Age: 42 Year
  Sex: Female
  Weight: 65 kg

DRUGS (1)
  1. RISPERDAL [Suspect]
     Indication: BRIEF PSYCHOTIC DISORDER WITH MARKED STRESSORS
     Dosage: SEE IMAGE
     Route: 048

REACTIONS (3)
  - BREAST ABSCESS [None]
  - GALACTORRHOEA [None]
  - HYPERPROLACTINAEMIA [None]
